FAERS Safety Report 16697040 (Version 2)
Quarter: 2019Q3

REPORT INFORMATION
  Report Type: Spontaneous
  Country: US (occurrence: US)
  Receive Date: 20190813
  Receipt Date: 20190830
  Transmission Date: 20191004
  Serious: No
  Sender: FDA-Public Use
  Company Number: US-PFIZER INC-2019343349

PATIENT
  Sex: Female

DRUGS (1)
  1. DEPO-PROVERA [Suspect]
     Active Substance: MEDROXYPROGESTERONE ACETATE
     Indication: MENSTRUAL CYCLE MANAGEMENT
     Dosage: UNK

REACTIONS (6)
  - Product use in unapproved indication [Unknown]
  - Iron deficiency [Unknown]
  - Off label use [Unknown]
  - Blood oestrogen decreased [Unknown]
  - Intentional product use issue [Unknown]
  - Skin depigmentation [Unknown]
